FAERS Safety Report 20158102 (Version 1)
Quarter: 2021Q4

REPORT INFORMATION
  Report Type: Spontaneous
  Country: US (occurrence: US)
  Receive Date: 20211207
  Receipt Date: 20211207
  Transmission Date: 20220304
  Serious: No
  Sender: FDA-Public Use
  Company Number: US-SA-SAC20211201001512

PATIENT
  Age: 49 Year
  Sex: Male

DRUGS (7)
  1. DUPIXENT [Suspect]
     Active Substance: DUPILUMAB
     Indication: Dermatitis atopic
     Dosage: 1 DF, QOW
     Route: 058
     Dates: start: 20210828
  2. CETIRIZINE [Concomitant]
     Active Substance: CETIRIZINE HYDROCHLORIDE
  3. CLOBETASOL [Concomitant]
     Active Substance: CLOBETASOL
  4. DOCUSATE [Concomitant]
     Active Substance: DOCUSATE
  5. EUCRISA [Concomitant]
     Active Substance: CRISABOROLE
  6. OMEPRAZOLE [Concomitant]
     Active Substance: OMEPRAZOLE
  7. PROTRIPTYLINE [Concomitant]
     Active Substance: PROTRIPTYLINE

REACTIONS (2)
  - Rash [Unknown]
  - Product dose omission issue [Unknown]
